FAERS Safety Report 15947138 (Version 3)
Quarter: 2019Q1

REPORT INFORMATION
  Report Type: Spontaneous
  Country: US (occurrence: US)
  Receive Date: 20190211
  Receipt Date: 20190320
  Transmission Date: 20190417
  Serious: No
  Sender: FDA-Public Use
  Company Number: US-PFIZER INC-2019055871

PATIENT
  Age: 43 Year
  Sex: Male

DRUGS (1)
  1. SERTRALINE HCL [Suspect]
     Active Substance: SERTRALINE HYDROCHLORIDE
     Indication: SCHIZOAFFECTIVE DISORDER BIPOLAR TYPE
     Dosage: 250 MG, 1X/DAY (2 1/2 EACH MORNING )

REACTIONS (5)
  - Asthenia [Unknown]
  - Product use in unapproved indication [Unknown]
  - Depression [Unknown]
  - Nausea [Unknown]
  - Paranoia [Unknown]
